FAERS Safety Report 9066806 (Version 1)
Quarter: 2013Q1

REPORT INFORMATION
  Report Type: Report from Study
  Country: US (occurrence: US)
  Receive Date: 20130131
  Receipt Date: 20130131
  Transmission Date: 20140127
  Serious: No
  Sender: FDA-Public Use
  Company Number: US-ABBOTT-12P-163-1007913-00

PATIENT
  Sex: Female

DRUGS (2)
  1. HUMIRA [Suspect]
     Indication: MATERNAL EXPOSURE TIMING UNSPECIFIED
     Route: 064
  2. VACCINES [Suspect]
     Indication: PRODUCT USED FOR UNKNOWN INDICATION
     Dates: start: 201107, end: 201107

REACTIONS (11)
  - Diarrhoea [Unknown]
  - Foetal exposure during pregnancy [Unknown]
  - Normal newborn [Unknown]
  - Nasopharyngitis [Recovered/Resolved]
  - Exposure during breast feeding [Unknown]
  - Pneumonia [Unknown]
  - Conjunctivitis infective [Unknown]
  - Croup infectious [Unknown]
  - Roseola [Unknown]
  - Ear infection [Unknown]
  - Clostridium difficile infection [Unknown]
